FAERS Safety Report 12912777 (Version 2)
Quarter: 2017Q2

REPORT INFORMATION
  Report Type: Report from Study
  Country: GB (occurrence: GB)
  Receive Date: 20161104
  Receipt Date: 20170511
  Transmission Date: 20170830
  Serious: Yes (Hospitalization)
  Sender: FDA-Public Use
  Company Number: GB-CELGENEUS-GBR-2016107147

PATIENT
  Age: 72 Year
  Sex: Male
  Weight: 71.3 kg

DRUGS (8)
  1. NELFINAVIR [Suspect]
     Active Substance: NELFINAVIR
     Indication: PANCREATIC CARCINOMA METASTATIC
     Dosage: 2000 MILLIGRAM
     Route: 048
     Dates: start: 20160921, end: 20161024
  2. GEMCITABINE [Suspect]
     Active Substance: GEMCITABINE\GEMCITABINE HYDROCHLORIDE
     Indication: PANCREATIC CARCINOMA METASTATIC
     Dosage: 1600 MILLIGRAM
     Route: 041
     Dates: start: 20160707, end: 20160902
  3. CAPECITABINE. [Suspect]
     Active Substance: CAPECITABINE
     Indication: PANCREATIC CARCINOMA METASTATIC
     Dosage: 3300 MILLIGRAM
     Route: 048
     Dates: start: 20160928, end: 20161024
  4. ABRAXANE [Suspect]
     Active Substance: PACLITAXEL
     Indication: PANCREATIC CARCINOMA METASTATIC
     Dosage: 200 MILLIGRAM
     Route: 041
     Dates: start: 20160707, end: 20160902
  5. METOCLOPRAMIDE. [Concomitant]
     Active Substance: METOCLOPRAMIDE
     Indication: VOMITING
  6. RANITIDINE. [Concomitant]
     Active Substance: RANITIDINE
     Indication: GASTRIC PH INCREASED
     Dosage: 300 MILLIGRAM
     Route: 048
     Dates: start: 20160922, end: 20161024
  7. METOCLOPRAMIDE. [Concomitant]
     Active Substance: METOCLOPRAMIDE
     Indication: NAUSEA
     Dosage: 30 MILLIGRAM
     Route: 048
     Dates: start: 20161024, end: 20161024
  8. BIPHASIL [Concomitant]
     Indication: DIABETES MELLITUS
     Dosage: 8 IU (INTERNATIONAL UNIT)
     Route: 058
     Dates: start: 20160201, end: 20161024

REACTIONS (1)
  - Biliary sepsis [Recovered/Resolved]

NARRATIVE: CASE EVENT DATE: 20161024
